FAERS Safety Report 16320998 (Version 1)
Quarter: 2020Q3

REPORT INFORMATION
  Report Type: Report from Study
  Country: IT (occurrence: IT)
  Receive Date: 20190516
  Receipt Date: 20190516
  Transmission Date: 20201105
  Serious: Yes (Death, Hospitalization)
  Sender: FDA-Public Use
  Company Number: IT-JNJFOC-20190510912

PATIENT
  Age: 80 Year
  Sex: Female

DRUGS (3)
  1. TRABECTEDIN [Suspect]
     Active Substance: TRABECTEDIN
     Route: 042
  2. TRABECTEDIN [Suspect]
     Active Substance: TRABECTEDIN
     Indication: SARCOMA UTERUS
     Dosage: CYCLE 1 DAY 1
     Route: 042
     Dates: start: 20190419, end: 20190419
  3. TRABECTEDIN [Suspect]
     Active Substance: TRABECTEDIN
     Indication: OVARIAN CANCER
     Dosage: CYCLE 1 DAY 1
     Route: 042
     Dates: start: 20190419, end: 20190419

REACTIONS (4)
  - Escherichia infection [Fatal]
  - Neutropenia [Unknown]
  - Cardiac arrest [Fatal]
  - Leukopenia [Unknown]

NARRATIVE: CASE EVENT DATE: 20190426
